FAERS Safety Report 12835007 (Version 3)
Quarter: 2016Q4

REPORT INFORMATION
  Report Type: Spontaneous
  Country: DE (occurrence: DE)
  Receive Date: 20161010
  Receipt Date: 20161223
  Transmission Date: 20170207
  Serious: Yes (Death, Hospitalization, Other)
  Sender: FDA-Public Use
  Company Number: DE-GILEAD-2016-0237332

PATIENT
  Age: 63 Year
  Sex: Male
  Weight: 80 kg

DRUGS (1)
  1. ZYDELIG [Suspect]
     Active Substance: IDELALISIB
     Indication: B-CELL LYMPHOMA
     Dosage: 150 MG, BID
     Route: 048
     Dates: start: 20160603, end: 20160702

REACTIONS (4)
  - Thrombocytopenia [Fatal]
  - Bone marrow failure [Unknown]
  - Anaemia [Fatal]
  - Neutropenia [Fatal]

NARRATIVE: CASE EVENT DATE: 20160701
